FAERS Safety Report 16494010 (Version 1)
Quarter: 2019Q2

REPORT INFORMATION
  Report Type: Report from Study
  Country: None (occurrence: CO)
  Receive Date: 20190628
  Receipt Date: 20190628
  Transmission Date: 20190711
  Serious: Yes (Death, Hospitalization)
  Sender: FDA-Public Use
  Company Number: CO-ABBVIE-19K-036-2836140-00

PATIENT
  Age: 57 Year
  Sex: Male

DRUGS (1)
  1. HUMIRA [Suspect]
     Active Substance: ADALIMUMAB
     Indication: UVEITIS
     Route: 058
     Dates: start: 20180423, end: 20190417

REACTIONS (5)
  - Malaise [Fatal]
  - Respiratory arrest [Fatal]
  - Cough [Fatal]
  - Respiratory distress [Fatal]
  - Pyrexia [Fatal]

NARRATIVE: CASE EVENT DATE: 201905
